FAERS Safety Report 19577413 (Version 1)
Quarter: 2021Q3

REPORT INFORMATION
  Report Type: Report from Study
  Country: US (occurrence: US)
  Receive Date: 20210719
  Receipt Date: 20210719
  Transmission Date: 20211014
  Serious: No
  Sender: FDA-Public Use
  Company Number: NVSC2021US153603

PATIENT
  Sex: Female

DRUGS (1)
  1. ENTRESTO [Suspect]
     Active Substance: SACUBITRIL\VALSARTAN
     Indication: CARDIAC FAILURE CHRONIC
     Dosage: 0.5 DF, BID(TAKING 1/2 PILL, 2 X DAY)
     Route: 065

REACTIONS (4)
  - Fatigue [Unknown]
  - Wrong technique in product usage process [Unknown]
  - Asthenia [Unknown]
  - Cough [Unknown]
